FAERS Safety Report 15761256 (Version 1)
Quarter: 2018Q4

REPORT INFORMATION
  Report Type: Spontaneous
  Country: US (occurrence: US)
  Receive Date: 20181226
  Receipt Date: 20181226
  Transmission Date: 20190205
  Serious: Yes (Hospitalization)
  Sender: FDA-Public Use
  Company Number: US-SILVERGATE PHARMACEUTICALS, INC.-2018SIL00057

PATIENT

DRUGS (2)
  1. METHOTREXATE. [Suspect]
     Active Substance: METHOTREXATE
     Dosage: 3 CYCLES OF 500 MG/M2 OVER 1 HOUR, 4500 MG/M2 OVER 23 HOURS, CONTINUOUS
     Route: 042
  2. METHOTREXATE. [Suspect]
     Active Substance: METHOTREXATE
     Indication: ACUTE LYMPHOCYTIC LEUKAEMIA
     Dosage: 5 G/M2
     Route: 065

REACTIONS (3)
  - Hypokalaemia [Unknown]
  - Hypocalcaemia [Unknown]
  - Toxicity to various agents [Recovering/Resolving]
